FAERS Safety Report 9283933 (Version 1)
Quarter: 2013Q2

REPORT INFORMATION
  Report Type: Spontaneous
  Country: CO (occurrence: CO)
  Receive Date: 20130510
  Receipt Date: 20130510
  Transmission Date: 20140414
  Serious: Yes (Death, Life-Threatening, Other)
  Sender: FDA-Public Use
  Company Number: CO-BAXTER-2013BAX017194

PATIENT
  Age: 60 Year
  Sex: Male

DRUGS (1)
  1. TISSUCOL [Suspect]
     Indication: HEPATECTOMY
     Dates: start: 20130406, end: 20130406

REACTIONS (2)
  - Thrombosis mesenteric vessel [Fatal]
  - Gastrointestinal necrosis [Unknown]
